FAERS Safety Report 12352649 (Version 1)
Quarter: 2016Q2

REPORT INFORMATION
  Report Type: Spontaneous
  Country: JP (occurrence: JP)
  Receive Date: 20160510
  Receipt Date: 20160510
  Transmission Date: 20160815
  Serious: Yes (Hospitalization)
  Sender: FDA-Public Use
  Company Number: JP-WATSON-2016-09407

PATIENT
  Age: 15 Year
  Sex: Female
  Weight: 36 kg

DRUGS (6)
  1. CLARITHROMYCIN (UNKNOWN) [Suspect]
     Active Substance: CLARITHROMYCIN
     Indication: PYREXIA
     Dosage: UNK
     Route: 065
  2. DIHYDROCODEINE [Concomitant]
     Active Substance: DIHYDROCODEINE
     Indication: H1N1 INFLUENZA
     Dosage: UNK
     Route: 065
  3. AMBROXOL [Concomitant]
     Active Substance: AMBROXOL
     Indication: H1N1 INFLUENZA
     Dosage: UNK
     Route: 065
  4. OSELTAMIVIR (UNKNOWN) [Suspect]
     Active Substance: OSELTAMIVIR
     Indication: H1N1 INFLUENZA
     Dosage: (5 DOSES OF 2 MG/KG EVERY TWELVE HOURS
     Route: 065
  5. AZITHROMYCIN (UNKNOWN) [Suspect]
     Active Substance: AZITHROMYCIN ANHYDROUS
     Indication: PYREXIA
     Dosage: UNK
     Route: 065
  6. BENPROPERINE [Concomitant]
     Active Substance: BENPROPERINE
     Indication: H1N1 INFLUENZA
     Dosage: UNK
     Route: 065

REACTIONS (2)
  - Potentiating drug interaction [Recovered/Resolved]
  - Delirium [Recovered/Resolved]
